FAERS Safety Report 21044719 (Version 2)
Quarter: 2022Q3

REPORT INFORMATION
  Report Type: Spontaneous
  Country: JP (occurrence: JP)
  Receive Date: 20220705
  Receipt Date: 20220728
  Transmission Date: 20221027
  Serious: Yes (Death, Other)
  Sender: FDA-Public Use
  Company Number: JP-MSD-M2022-15684

PATIENT
  Age: 55 Year
  Sex: Male

DRUGS (3)
  1. KEYTRUDA [Suspect]
     Active Substance: PEMBROLIZUMAB
     Indication: Renal cell carcinoma stage IV
     Dosage: 200 MILLIGRAM, Q3W
     Route: 041
     Dates: start: 20200603
  2. INLYTA [Suspect]
     Active Substance: AXITINIB
     Indication: Renal cell carcinoma stage IV
     Dosage: 10 MILLIGRAM, BID
     Route: 065
     Dates: start: 20200603, end: 20200622
  3. INLYTA [Suspect]
     Active Substance: AXITINIB
     Dosage: 7 MILLIGRAM, BID
     Route: 065
     Dates: start: 20200623

REACTIONS (5)
  - Malignant neoplasm progression [Unknown]
  - Hypothyroidism [Recovered/Resolved]
  - Type 1 diabetes mellitus [Recovered/Resolved]
  - Myocardial infarction [Fatal]
  - Colitis [Recovering/Resolving]

NARRATIVE: CASE EVENT DATE: 20200623
